FAERS Safety Report 8488405-3 (Version None)
Quarter: 2012Q3

REPORT INFORMATION
  Report Type: 
  Country: None (occurrence: None)
  Receive Date: 20120705
  Receipt Date: 20120621
  Transmission Date: 20120928
  Serious: No
  Sender: FDA-Public Use
  Company Number: US-JNJFOC-20120612757

PATIENT
  Age: 48 Year
  Sex: Female
  Weight: 97.52 kg

DRUGS (1)
  1. INVEGA SUSTENNA [Suspect]
     Indication: ACCIDENTAL EXPOSURE
     Route: 030

REACTIONS (2)
  - SYRINGE ISSUE [None]
  - ACCIDENTAL EXPOSURE [None]
